FAERS Safety Report 6132666-2 (Version None)
Quarter: 2009Q1

REPORT INFORMATION
  Report Type: 
  Country: None (occurrence: None)
  Receive Date: 20090324
  Receipt Date: 20090310
  Transmission Date: 20090719
  Serious: Yes (Hospitalization)
  Sender: FDA-Public Use
  Company Number: 232147K09USA

PATIENT
  Age: 48 Year
  Sex: Male
  Weight: 154 kg

DRUGS (5)
  1. REBIF [Suspect]
     Indication: MULTIPLE SCLEROSIS
     Dosage: 44 MCG, 3 IN 1 WEEKS, SUBCUTANEOUS
     Route: 058
     Dates: start: 20080530
  2. METFORMIN HCL [Concomitant]
  3. PRAVASTATIN [Concomitant]
  4. BENICAR [Concomitant]
  5. NORVASC [Concomitant]

REACTIONS (3)
  - FOOT FRACTURE [None]
  - HEPATIC ENZYME INCREASED [None]
  - OPEN FRACTURE [None]
